FAERS Safety Report 17325715 (Version 1)
Quarter: 2020Q1

REPORT INFORMATION
  Report Type: Spontaneous
  Country: GB (occurrence: GB)
  Receive Date: 20200127
  Receipt Date: 20200127
  Transmission Date: 20200409
  Serious: Yes (Life-Threatening, Hospitalization, Other)
  Sender: FDA-Public Use
  Company Number: GB-PFIZER INC-2020031697

PATIENT
  Age: 34 Year
  Sex: Male

DRUGS (8)
  1. ZAPONEX [Suspect]
     Active Substance: CLOZAPINE
     Indication: SCHIZOPHRENIA
     Dosage: 425 MG, DAILY (50MG OM 375MG ON)
     Route: 048
  2. ORPHENADRINE [Concomitant]
     Active Substance: ORPHENADRINE
     Dosage: 400 MG, DAILY (100MG OM + 300MG ON)
  3. BISACODYL. [Concomitant]
     Active Substance: BISACODYL
     Dosage: 10 MG, DAILY
  4. VENLAFAXINE HCL [Suspect]
     Active Substance: VENLAFAXINE HYDROCHLORIDE
     Indication: DEPRESSION
     Dosage: 300 MG, DAILY MR
     Route: 048
  5. AMISULPRIDE [Suspect]
     Active Substance: AMISULPRIDE
     Indication: SCHIZOPHRENIA
     Dosage: 1000 MG, DAILY (400MG OM AND 600MG ON)
     Route: 048
  6. DULOXETINE. [Suspect]
     Active Substance: DULOXETINE
     Indication: DEPRESSION
     Dosage: 120MG 1X/DAY, ON
     Route: 048
  7. LITHIUM. [Suspect]
     Active Substance: LITHIUM
     Indication: DEPRESSION
     Dosage: 800 MG, 1X/DAY, ON
     Route: 048
  8. HYOSCINE HYDROBROMIDE [Concomitant]
     Active Substance: SCOPOLAMINE HYDROBROMIDE
     Dosage: 900 UG, DAILY, (300UG OM 600UG ON)

REACTIONS (4)
  - Seizure [Recovered/Resolved]
  - Convulsive threshold lowered [Unknown]
  - Electrocardiogram QT prolonged [Unknown]
  - Amnesia [Unknown]

NARRATIVE: CASE EVENT DATE: 20190802
